FAERS Safety Report 4915457-7 (Version None)
Quarter: 2006Q1

REPORT INFORMATION
  Report Type: 
  Country: None (occurrence: None)
  Receive Date: 20060217
  Receipt Date: 20060202
  Transmission Date: 20060701
  Serious: Yes (Hospitalization)
  Sender: FDA-Public Use
  Company Number: DE-MERCK-0602DEU00012

PATIENT
  Age: 38 Year
  Sex: Male

DRUGS (6)
  1. SINGULAIR [Suspect]
     Indication: BRONCHITIS
     Route: 048
     Dates: start: 20060102, end: 20060118
  2. CICLESONIDE [Concomitant]
     Route: 065
     Dates: start: 20060106, end: 20060118
  3. AMOXICILLIN [Concomitant]
     Route: 065
     Dates: start: 20051228, end: 20060106
  4. AMBROXOL HYDROCHLORIDE AND CLENBUTEROL HYDROCHLORIDE [Concomitant]
     Route: 065
     Dates: start: 20060111, end: 20060118
  5. PANTOPRAZOLE SODIUM [Concomitant]
     Indication: OESOPHAGITIS
     Route: 065
  6. PANTOPRAZOLE SODIUM [Concomitant]
     Indication: ABDOMINAL HERNIA
     Route: 065

REACTIONS (2)
  - BLOOD CREATINE PHOSPHOKINASE INCREASED [None]
  - MYALGIA [None]
